FAERS Safety Report 13619484 (Version 1)
Quarter: 2017Q2

REPORT INFORMATION
  Report Type: Spontaneous
  Country: US (occurrence: US)
  Receive Date: 20170606
  Receipt Date: 20170606
  Transmission Date: 20170830
  Serious: Yes (Life-Threatening, Other)
  Sender: FDA-Public Use
  Company Number: None

PATIENT
  Age: 6 Year
  Sex: Male
  Weight: 22.5 kg

DRUGS (2)
  1. QUILLAVENT [Concomitant]
  2. INTUNIV [Suspect]
     Active Substance: GUANFACINE HYDROCHLORIDE
     Indication: ATTENTION DEFICIT/HYPERACTIVITY DISORDER
     Dosage: ?          QUANTITY:1 TABLET(S);?
     Route: 048
     Dates: start: 20170418, end: 20170522

REACTIONS (5)
  - Somnolence [None]
  - Product substitution issue [None]
  - Pallor [None]
  - Headache [None]
  - Feeding disorder [None]

NARRATIVE: CASE EVENT DATE: 20170518
